FAERS Safety Report 5146079-3 (Version None)
Quarter: 2006Q4

REPORT INFORMATION
  Report Type: 
  Country: None (occurrence: None)
  Receive Date: 20061108
  Receipt Date: 20061031
  Transmission Date: 20070319
  Serious: Yes (Other)
  Sender: FDA-Public Use
  Company Number: 2006PK02265

PATIENT
  Age: 70 Year
  Sex: Female

DRUGS (6)
  1. PLENDIL [Suspect]
     Indication: ANGINA PECTORIS
     Route: 048
  2. SPIROCORT [Concomitant]
  3. ASPIRIN [Concomitant]
  4. LIMBITROL [Concomitant]
     Dosage: 12.5 MG /5 MG ONE AND A HALF TABL A DAY
  5. CALCIMAGON [Concomitant]
  6. MST [Concomitant]

REACTIONS (2)
  - OEDEMA PERIPHERAL [None]
  - VASCULITIS [None]
